FAERS Safety Report 7677357-1 (Version None)
Quarter: 2011Q3

REPORT INFORMATION
  Report Type: 
  Country: None (occurrence: None)
  Receive Date: 20110811
  Receipt Date: 20110729
  Transmission Date: 20111222
  Serious: Yes (Hospitalization)
  Sender: FDA-Public Use
  Company Number: IT-ELI_LILLY_AND_COMPANY-IT201105006766

PATIENT
  Age: 36 Year
  Sex: Female
  Weight: 85 kg

DRUGS (3)
  1. LAMICTAL [Concomitant]
     Dosage: 200 MG, QD
  2. NSAID'S [Concomitant]
     Indication: PYREXIA
  3. ZYPREXA [Suspect]
     Indication: BIPOLAR DISORDER
     Dosage: 20 MG, QD
     Dates: start: 20060101, end: 20110316

REACTIONS (3)
  - SYNCOPE [None]
  - PULMONARY EMBOLISM [None]
  - SINUS TACHYCARDIA [None]
